FAERS Safety Report 6287300-8 (Version None)
Quarter: 2009Q3

REPORT INFORMATION
  Report Type: 
  Country: None (occurrence: None)
  Receive Date: 20090728
  Receipt Date: 20090717
  Transmission Date: 20100115
  Serious: Yes (Other)
  Sender: FDA-Public Use
  Company Number: US-WYE-H08489909

PATIENT
  Sex: Female

DRUGS (9)
  1. PREMPRO [Suspect]
     Indication: HORMONE REPLACEMENT THERAPY
  2. PROVERA [Suspect]
  3. PREMARIN [Suspect]
     Indication: HORMONE REPLACEMENT THERAPY
  4. ESTRADIOL VALERATE [Suspect]
  5. ESTRADIOL [Suspect]
  6. ESTROFEM [Suspect]
  7. DEPO-ESTRADIOL [Suspect]
  8. PREMARIN [Suspect]
  9. OGEN [Suspect]

REACTIONS (1)
  - BREAST CANCER METASTATIC [None]
